FAERS Safety Report 4303627-0 (Version None)
Quarter: 2004Q1

REPORT INFORMATION
  Report Type: 
  Country: None (occurrence: None)
  Receive Date: 20040223
  Receipt Date: 20040213
  Transmission Date: 20041129
  Serious: Yes (Death)
  Sender: FDA-Public Use
  Company Number: 163-20785-03110408

PATIENT
  Age: 41 Year
  Sex: Female

DRUGS (1)
  1. THALOMID [Suspect]
     Indication: CERVIX CARCINOMA
     Dosage: 200 MG, DAILY, ORAL
     Route: 048
     Dates: start: 20030722, end: 20030819

REACTIONS (2)
  - CERVIX CARCINOMA [None]
  - MALIGNANT NEOPLASM PROGRESSION [None]
